FAERS Safety Report 23444137 (Version 3)
Quarter: 2024Q3

REPORT INFORMATION
  Report Type: Report from Study
  Country: US (occurrence: US)
  Receive Date: 20240125
  Receipt Date: 20240814
  Transmission Date: 20241016
  Serious: Yes (Other)
  Sender: ALEXION PHARMACEUTICALS
  Company Number: US-ALXN-A202301735

PATIENT
  Sex: Male

DRUGS (6)
  1. ULTOMIRIS [Suspect]
     Active Substance: RAVULIZUMAB-CWVZ
     Indication: Myasthenia gravis
     Dosage: UNK, EVERY 8 WEEKS
     Route: 042
     Dates: start: 20220825
  2. SOLIRIS [Suspect]
     Active Substance: ECULIZUMAB
     Indication: Myasthenia gravis
     Dosage: UNK
     Route: 042
  3. MESTINON [Suspect]
     Active Substance: PYRIDOSTIGMINE BROMIDE
     Indication: Product used for unknown indication
     Dosage: UNK, TID
     Route: 065
  4. MESTINON [Suspect]
     Active Substance: PYRIDOSTIGMINE BROMIDE
     Dosage: 180 MILLIGRAM, 5 TIMES A DAY
     Route: 065
  5. PRIVIGEN [Suspect]
     Active Substance: HUMAN IMMUNOGLOBULIN G
     Indication: Product used for unknown indication
     Dosage: UNK,6 HOURS, EVERY 8 WEEKS
     Route: 042
  6. PRIVIGEN [Suspect]
     Active Substance: HUMAN IMMUNOGLOBULIN G
     Dosage: UNK,6 HOURS, EVERY 4 WEEKS
     Route: 042

REACTIONS (7)
  - Diplopia [Not Recovered/Not Resolved]
  - Mastication disorder [Unknown]
  - Musculoskeletal stiffness [Unknown]
  - Rhinitis [Unknown]
  - Drooling [Unknown]
  - Depressed mood [Unknown]
  - Diarrhoea [Unknown]
